FAERS Safety Report 7564926-2 (Version None)
Quarter: 2011Q2

REPORT INFORMATION
  Report Type: 
  Country: None (occurrence: None)
  Receive Date: 20110622
  Receipt Date: 20110307
  Transmission Date: 20111010
  Serious: Yes (Death)
  Sender: FDA-Public Use
  Company Number: US-MYLANLABS-2011S1003623

PATIENT
  Age: 63 Year
  Sex: Male
  Weight: 83.92 kg

DRUGS (16)
  1. DUONEB [Concomitant]
  2. SODIUM CHLORIDE [Concomitant]
     Route: 045
  3. CLOZAPINE [Suspect]
     Indication: SCHIZOPHRENIA
     Route: 048
     Dates: start: 20060405, end: 20110202
  4. FINASTERIDE [Concomitant]
  5. LEVOTHYROXINE SODIUM [Concomitant]
  6. OYSTER SHELL CACIUM WITH VITAMIN D [Concomitant]
  7. TRICOR [Concomitant]
  8. DOXAZOSIN MESYLATE [Concomitant]
  9. OMEPRAZOLE [Concomitant]
  10. DOCUSATE [Concomitant]
  11. CLOZAPINE [Suspect]
     Route: 048
     Dates: start: 20060405, end: 20110202
  12. CITRUCEL [Concomitant]
  13. CITALOPRAM HYDROBROMIDE [Concomitant]
  14. ADVAIR DISKUS 100/50 [Concomitant]
  15. DIVALPROEX SODIUM [Concomitant]
  16. SPIRIVA [Concomitant]

REACTIONS (1)
  - DEATH [None]
